FAERS Safety Report 9436028 (Version 2)
Quarter: 2013Q3

REPORT INFORMATION
  Report Type: Spontaneous
  Country: CN (occurrence: CN)
  Receive Date: 20130801
  Receipt Date: 20130918
  Transmission Date: 20140515
  Serious: Yes (Life-Threatening, Other)
  Sender: FDA-Public Use
  Company Number: CN-ROCHE-1256119

PATIENT
  Age: 35 Year
  Sex: Male

DRUGS (1)
  1. PEGASYS [Suspect]
     Indication: HEPATITIS B
     Route: 058
     Dates: start: 20130730, end: 20130730

REACTIONS (3)
  - Anaphylactic shock [Recovering/Resolving]
  - Rash generalised [Not Recovered/Not Resolved]
  - Weight decreased [Not Recovered/Not Resolved]
